FAERS Safety Report 6095546-7 (Version None)
Quarter: 2009Q1

REPORT INFORMATION
  Report Type: 
  Country: None (occurrence: None)
  Receive Date: 20090227
  Receipt Date: 20080527
  Transmission Date: 20090719
  Serious: No
  Sender: FDA-Public Use
  Company Number: A0724349A

PATIENT
  Age: 15 Year
  Sex: Female
  Weight: 60.9 kg

DRUGS (3)
  1. LAMICTAL [Suspect]
     Indication: BIPOLAR DISORDER
     Dosage: 200MG PER DAY
     Route: 048
     Dates: start: 20070901
  2. UNKNOWN MEDICATION [Concomitant]
  3. HYDROCORTISONE [Concomitant]

REACTIONS (4)
  - ELEVATED MOOD [None]
  - FOLLICULITIS [None]
  - RASH [None]
  - RASH PRURITIC [None]
